FAERS Safety Report 17112919 (Version 1)
Quarter: 2019Q4

REPORT INFORMATION
  Report Type: Spontaneous
  Country: CA (occurrence: CA)
  Receive Date: 20191204
  Receipt Date: 20191204
  Transmission Date: 20200122
  Serious: No
  Sender: FDA-Public Use
  Company Number: CA-B.BRAUN MEDICAL INC.-2077469

PATIENT
  Age: 30 Year
  Sex: Female

DRUGS (5)
  1. CALCIUM CARBONATE WITH VITAMIN D (CHOLECALCIFEROL) [Suspect]
     Active Substance: CALCIUM CARBONATE\CHOLECALCIFEROL
     Route: 065
  2. ERGOCALCIFEROL. [Suspect]
     Active Substance: ERGOCALCIFEROL
     Route: 065
  3. SODIUM CHLORIDE INJECTION USP 0264-7800-09 [Suspect]
     Active Substance: SODIUM CHLORIDE
     Indication: HYPERCALCAEMIA
     Route: 042
  4. CALCITONIN [Suspect]
     Active Substance: CALCITONIN
     Route: 030
  5. CALCIUM CARBONATE. [Suspect]
     Active Substance: CALCIUM CARBONATE

REACTIONS (10)
  - Hypercalcaemia [Recovered/Resolved]
  - Blood calcium increased [Recovered/Resolved]
  - Diabetes insipidus [Recovered/Resolved]
  - Maternal exposure during pregnancy [Recovered/Resolved]
  - Nephrocalcinosis [Recovered/Resolved]
  - Renal failure [Recovered/Resolved]
  - Blood creatinine increased [Recovered/Resolved]
  - Calculus urinary [Recovered/Resolved]
  - Drug ineffective [Recovered/Resolved]
  - Normal newborn [Recovered/Resolved]
